FAERS Safety Report 5338365-9 (Version None)
Quarter: 2007Q2

REPORT INFORMATION
  Report Type: 
  Country: None (occurrence: None)
  Receive Date: 20070530
  Receipt Date: 20070521
  Transmission Date: 20071010
  Serious: Yes (Other)
  Sender: FDA-Public Use
  Company Number: GB-JNJFOC-20070505292

PATIENT
  Age: 73 Year
  Sex: Female
  Weight: 77 kg

DRUGS (11)
  1. REMICADE [Suspect]
     Indication: RHEUMATOID ARTHRITIS
     Route: 042
  2. ESCLIBRATE [Concomitant]
     Dosage: TDS
  3. ASPIRIN [Concomitant]
  4. ATENOLOL [Concomitant]
  5. FOLIC ACID [Concomitant]
  6. FRUSEMIDE [Concomitant]
     Indication: CARDIAC FAILURE
     Route: 048
  7. MEBEVERINE [Concomitant]
     Indication: IRRITABLE BOWEL SYNDROME
     Route: 048
  8. METHOTREXATE [Concomitant]
  9. NICORANDIL [Concomitant]
     Indication: MYOCARDIAL ISCHAEMIA
     Route: 048
  10. PLAQUENIL [Concomitant]
     Indication: RHEUMATOID ARTHRITIS
     Route: 048
  11. SPIRONOLACTONE [Concomitant]
     Indication: CARDIAC FAILURE
     Route: 048

REACTIONS (3)
  - HERPES ZOSTER [None]
  - NEUTROPENIA [None]
  - POST HERPETIC NEURALGIA [None]
